FAERS Safety Report 25849496 (Version 2)
Quarter: 2025Q4

REPORT INFORMATION
  Report Type: Spontaneous
  Country: US (occurrence: US)
  Receive Date: 20250926
  Receipt Date: 20251001
  Transmission Date: 20260118
  Serious: Yes (Hospitalization)
  Sender: ABBVIE
  Company Number: US-ABBVIE-6472227

PATIENT
  Age: 72 Year
  Sex: Female

DRUGS (1)
  1. RISANKIZUMAB [Suspect]
     Active Substance: RISANKIZUMAB
     Indication: Psoriasis
     Dosage: UNKNOWN
     Route: 058

REACTIONS (2)
  - Hip arthroplasty [Unknown]
  - Off label use [Unknown]

NARRATIVE: CASE EVENT DATE: 20250101
